FAERS Safety Report 7762924-7 (Version None)
Quarter: 2011Q3

REPORT INFORMATION
  Report Type: 
  Country: None (occurrence: None)
  Receive Date: 20110920
  Receipt Date: 20110912
  Transmission Date: 20111222
  Serious: Yes (Other)
  Sender: FDA-Public Use
  Company Number: PHHY2011GB80809

PATIENT
  Age: 51 Year
  Sex: Male

DRUGS (10)
  1. VITAMIN B KOMPLEX [Concomitant]
     Dosage: 1 DF, QD
     Route: 048
  2. OMEPRAZOLE [Suspect]
     Indication: THROMBOSIS
     Dosage: 40 MG, QD
     Route: 048
  3. VALPROIC ACID [Concomitant]
     Dosage: 200 TO 500 MG, BID
     Route: 048
  4. NARATRIPTAN [Concomitant]
     Dosage: 2.5 MG, UNK
     Route: 048
  5. FERROUS SULFATE TAB [Concomitant]
     Dosage: 200 MG, TID
     Route: 048
  6. GAVISCON [Concomitant]
     Route: 048
  7. LEVETIRACETAM [Concomitant]
     Dosage: 1000 MG, BID
     Route: 048
  8. PHENYTOIN SODIUM [Concomitant]
     Dosage: 100 TO 300 MG, UNK
     Route: 048
  9. PYRIDOXINE HCL [Concomitant]
     Dosage: 10 MG, BID
     Route: 048
  10. FOLIC ACID [Concomitant]
     Dosage: 5 MG, QD
     Route: 048

REACTIONS (2)
  - EPILEPSY [None]
  - INSOMNIA [None]
